FAERS Safety Report 24171112 (Version 2)
Quarter: 2024Q3

REPORT INFORMATION
  Report Type: Spontaneous
  Country: US (occurrence: US)
  Receive Date: 20240805
  Receipt Date: 20240809
  Transmission Date: 20241017
  Serious: Yes (Life-Threatening, Hospitalization, Other)
  Sender: SANOFI AVENTIS
  Company Number: US-SA-SAC20240731001494

PATIENT
  Age: 56 Year
  Sex: Female

DRUGS (1)
  1. DUPIXENT [Suspect]
     Active Substance: DUPILUMAB
     Indication: Dermatitis atopic
     Dosage: 300 MG, QOW
     Route: 058
     Dates: start: 20240702

REACTIONS (13)
  - Chest pain [Unknown]
  - Dyspnoea [Unknown]
  - Blood pressure decreased [Unknown]
  - Cardiac arrest [Unknown]
  - Blood pressure increased [Unknown]
  - Headache [Unknown]
  - Depressed mood [Unknown]
  - Fatigue [Unknown]
  - Gait disturbance [Unknown]
  - Dry skin [Unknown]
  - Skin exfoliation [Unknown]
  - Pruritus [Unknown]
  - Injection site pain [Unknown]

NARRATIVE: CASE EVENT DATE: 20240701
